FAERS Safety Report 5861508-5 (Version None)
Quarter: 2008Q3

REPORT INFORMATION
  Report Type: 
  Country: None (occurrence: None)
  Receive Date: 20080827
  Receipt Date: 20080527
  Transmission Date: 20090109
  Serious: No
  Sender: FDA-Public Use
  Company Number: US-ABBOTT-08P-163-0453393-00

PATIENT
  Sex: Female
  Weight: 68.1 kg

DRUGS (3)
  1. COATED PDS [Suspect]
     Indication: DRUG USE FOR UNKNOWN INDICATION
     Route: 048
     Dates: start: 20080423, end: 20080507
  2. COATED PDS [Suspect]
     Route: 048
     Dates: start: 20080507
  3. MONTELUKAST SODIUM [Concomitant]
     Indication: HYPERSENSITIVITY
     Route: 048

REACTIONS (1)
  - SOMNOLENCE [None]
